FAERS Safety Report 23922044 (Version 1)
Quarter: 2024Q2

REPORT INFORMATION
  Report Type: Spontaneous
  Country: CN (occurrence: CN)
  Receive Date: 20240531
  Receipt Date: 20240531
  Transmission Date: 20240716
  Serious: Yes (Other)
  Sender: FDA-Public Use
  Company Number: CN-ABBVIE-5777222

PATIENT
  Age: 76 Year
  Sex: Male
  Weight: 65 kg

DRUGS (3)
  1. VENETOCLAX [Suspect]
     Active Substance: VENETOCLAX
     Indication: Acute leukaemia
     Route: 048
     Dates: start: 20240520
  2. SODIUM BICARBONATE [Concomitant]
     Active Substance: SODIUM BICARBONATE
     Indication: Product used for unknown indication
     Dosage: INJECTION 50ML ?INTRAVENOUS GLUCOSE TOLERANCE TEST
     Dates: start: 20240521, end: 20240522
  3. SODIUM CHLORIDE [Concomitant]
     Active Substance: SODIUM CHLORIDE
     Indication: Product used for unknown indication
     Dosage: 0.9% SODIUM CHLORIDE INJECTION 450ML?INTRAVENOUS GLUCOSE TOLERANCE TEST,
     Dates: start: 20240521, end: 20240522

REACTIONS (5)
  - White blood cell count decreased [Recovering/Resolving]
  - Blood uric acid increased [Recovering/Resolving]
  - Myelosuppression [Recovering/Resolving]
  - Blood phosphorus increased [Recovering/Resolving]
  - Acute myeloid leukaemia [Unknown]

NARRATIVE: CASE EVENT DATE: 20240501
